FAERS Safety Report 24056802 (Version 1)
Quarter: 2024Q3

REPORT INFORMATION
  Report Type: Report from Study
  Country: US (occurrence: US)
  Receive Date: 20240705
  Receipt Date: 20240705
  Transmission Date: 20241017
  Serious: Yes (Other)
  Sender: ABBVIE
  Company Number: US-ABBVIE-5827087

PATIENT
  Sex: Female

DRUGS (1)
  1. SKYRIZI [Suspect]
     Active Substance: RISANKIZUMAB-RZAA
     Indication: Product used for unknown indication
     Route: 058

REACTIONS (5)
  - Knee operation [Unknown]
  - Musculoskeletal stiffness [Not Recovered/Not Resolved]
  - Illness [Unknown]
  - Pain in extremity [Unknown]
  - Exposure to SARS-CoV-2 [Unknown]
